FAERS Safety Report 25883055 (Version 1)
Quarter: 2025Q4

REPORT INFORMATION
  Report Type: Spontaneous
  Country: US (occurrence: US)
  Receive Date: 20251006
  Receipt Date: 20251006
  Transmission Date: 20260117
  Serious: Yes (Death, Other)
  Sender: Kenvue
  Company Number: US-KENVUE-20250916032

PATIENT
  Sex: Male

DRUGS (1)
  1. TYLENOL [Suspect]
     Active Substance: ACETAMINOPHEN
     Indication: Back pain
     Dosage: DAILY
     Route: 065

REACTIONS (1)
  - Hepatic failure [Fatal]
